FAERS Safety Report 14998740 (Version 1)
Quarter: 2018Q2

REPORT INFORMATION
  Report Type: Spontaneous
  Country: IE (occurrence: IE)
  Receive Date: 20180612
  Receipt Date: 20180612
  Transmission Date: 20180711
  Serious: Yes (Other)
  Sender: FDA-Public Use
  Company Number: IE-ASTELLAS-2018US026221

PATIENT
  Age: 85 Year
  Sex: Male

DRUGS (1)
  1. BETMIGA [Suspect]
     Active Substance: MIRABEGRON
     Indication: URINARY TRACT DISORDER
     Route: 048
     Dates: start: 201701

REACTIONS (4)
  - Off label use [Unknown]
  - Parkinson^s disease [Not Recovered/Not Resolved]
  - Product use in unapproved indication [Unknown]
  - Dysphagia [Not Recovered/Not Resolved]
